FAERS Safety Report 4496146-2 (Version None)
Quarter: 2004Q4

REPORT INFORMATION
  Report Type: 
  Country: None (occurrence: None)
  Receive Date: 20041108
  Receipt Date: 20041108
  Transmission Date: 20050328
  Serious: Yes (Other)
  Sender: FDA-Public Use
  Company Number: None

PATIENT
  Sex: Male
  Weight: 4.9896 kg

DRUGS (1)
  1. NITROFURANTOIN [Suspect]
     Indication: URINARY TRACT INFECTION
     Dosage: 100 MG BID ORAL
     Route: 048
     Dates: start: 20041026, end: 20041028

REACTIONS (3)
  - DRUG EXPOSURE VIA BREAST MILK [None]
  - LETHARGY [None]
  - SOMNOLENCE [None]
